FAERS Safety Report 9347887 (Version 1)
Quarter: 2013Q2

REPORT INFORMATION
  Report Type: Spontaneous
  Country: IT (occurrence: IT)
  Receive Date: 20130614
  Receipt Date: 20130614
  Transmission Date: 20140414
  Serious: Yes (Hospitalization)
  Sender: FDA-Public Use
  Company Number: IT-TEVA-410557ISR

PATIENT
  Age: 83 Year
  Sex: Female

DRUGS (3)
  1. TICLOPIDINE [Suspect]
     Indication: ANGIOPLASTY
     Dosage: 1 DOSAGE FORMS DAILY;
     Route: 048
     Dates: start: 20060101, end: 20130504
  2. SOLOSA 2 MG [Concomitant]
     Indication: DIABETES MELLITUS
  3. TORVAST 10 MG [Concomitant]

REACTIONS (3)
  - Rectal haemorrhage [Recovering/Resolving]
  - Subendocardial ischaemia [Recovering/Resolving]
  - Anaemia [Recovering/Resolving]
